FAERS Safety Report 8182857-4 (Version None)
Quarter: 2012Q1

REPORT INFORMATION
  Report Type: 
  Country: None (occurrence: None)
  Receive Date: 20120305
  Receipt Date: 20120224
  Transmission Date: 20120608
  Serious: Yes (Hospitalization, Other)
  Sender: FDA-Public Use
  Company Number: US-BAYER-2011-050453

PATIENT
  Age: 34 Year
  Sex: Female
  Weight: 61 kg

DRUGS (2)
  1. YAZ [Suspect]
     Dosage: 1 DF, QD
     Route: 048
     Dates: start: 20080603, end: 20090101
  2. YAZ [Suspect]
     Dosage: 1 DF, QD
     Route: 048
     Dates: start: 20090518, end: 20091101

REACTIONS (9)
  - PAIN [None]
  - ANHEDONIA [None]
  - ANXIETY [None]
  - INJURY [None]
  - GENERAL PHYSICAL HEALTH DETERIORATION [None]
  - ARRHYTHMIA [None]
  - GALLBLADDER INJURY [None]
  - EMOTIONAL DISTRESS [None]
  - CHOLECYSTITIS [None]
